FAERS Safety Report 4679553-4 (Version None)
Quarter: 2005Q2

REPORT INFORMATION
  Report Type: 
  Country: None (occurrence: None)
  Receive Date: 20050602
  Receipt Date: 20050504
  Transmission Date: 20051028
  Serious: Yes (Other)
  Sender: FDA-Public Use
  Company Number: PHEH2005US05149

PATIENT
  Age: 36 Year
  Sex: Female

DRUGS (1)
  1. FAMVIR [Suspect]
     Indication: HERPES ZOSTER
     Dosage: 500 MG, TID
     Route: 048
     Dates: start: 20050429

REACTIONS (4)
  - DRUG EXPOSURE DURING PREGNANCY [None]
  - FOETAL HEART RATE DECELERATION [None]
  - FOETAL MOVEMENTS DECREASED [None]
  - HEADACHE [None]
